FAERS Safety Report 7570766-0 (Version None)
Quarter: 2011Q2

REPORT INFORMATION
  Report Type: 
  Country: None (occurrence: None)
  Receive Date: 20110624
  Receipt Date: 20110614
  Transmission Date: 20111010
  Serious: Yes (Other)
  Sender: FDA-Public Use
  Company Number: CA-ELI_LILLY_AND_COMPANY-CA201106004066

PATIENT
  Age: 28 Year
  Sex: Male

DRUGS (2)
  1. HUMALOG [Suspect]
     Dosage: UNK
     Dates: start: 20000101
  2. LANTUS [Concomitant]
     Dosage: UNK
     Dates: start: 20000101

REACTIONS (1)
  - CONVULSION [None]
